FAERS Safety Report 8451021-3 (Version None)
Quarter: 2012Q2

REPORT INFORMATION
  Report Type: 
  Country: None (occurrence: None)
  Receive Date: 20120620
  Receipt Date: 20120606
  Transmission Date: 20120825
  Serious: Yes (Other)
  Sender: FDA-Public Use
  Company Number: US-ROCHE-1061711

PATIENT
  Sex: Male
  Weight: 77.18 kg

DRUGS (3)
  1. ACCUTANE [Suspect]
     Indication: ACNE
     Route: 048
     Dates: start: 20060525, end: 20061220
  2. SOTRET [Suspect]
     Indication: ACNE
     Route: 048
     Dates: start: 20060527, end: 20061222
  3. ACCUTANE [Suspect]
     Dates: end: 20070117

REACTIONS (11)
  - COLITIS ULCERATIVE [None]
  - ANXIETY [None]
  - DEPRESSION [None]
  - LIP DRY [None]
  - IRRITABLE BOWEL SYNDROME [None]
  - SUICIDAL IDEATION [None]
  - EPISTAXIS [None]
  - ACNE [None]
  - ARTHRALGIA [None]
  - INFLAMMATORY BOWEL DISEASE [None]
  - CROHN'S DISEASE [None]
